FAERS Safety Report 4300248-0 (Version None)
Quarter: 2004Q1

REPORT INFORMATION
  Report Type: 
  Country: None (occurrence: None)
  Receive Date: 20040218
  Receipt Date: 20040206
  Transmission Date: 20041129
  Serious: Yes (Other)
  Sender: FDA-Public Use
  Company Number: 235264

PATIENT
  Age: 53 Year
  Sex: Male

DRUGS (6)
  1. NOVORAPID CHU FLEXPEN (INSULIN ASPART) SOLUTION FOR INJECTION, 100U/ML [Suspect]
     Indication: DIABETES MELLITUS INSULIN-DEPENDENT
  2. HUMACART-N [Concomitant]
  3. TANATRIL ^TANABE^ (IMIDAPRIL HYDROCHLORIDE) [Concomitant]
  4. WARFARIN SODIUM [Concomitant]
  5. PROPYLTHIOURACIL [Concomitant]
  6. ALTAT (ROXATIDINE ACETATE HYDROCHLORIDE) [Concomitant]

REACTIONS (1)
  - HEPATITIS FULMINANT [None]
